FAERS Safety Report 8590820-4 (Version None)
Quarter: 2012Q3

REPORT INFORMATION
  Report Type: 
  Country: None (occurrence: None)
  Receive Date: 20120813
  Receipt Date: 20120806
  Transmission Date: 20120928
  Serious: Yes (Death)
  Sender: FDA-Public Use
  Company Number: JP-BRISTOL-MYERS SQUIBB COMPANY-16841645

PATIENT
  Sex: Male

DRUGS (5)
  1. MEPTIN [Concomitant]
     Route: 048
     Dates: end: 20110831
  2. AMARYL [Concomitant]
     Route: 048
     Dates: end: 20110831
  3. NORVASC [Concomitant]
     Route: 048
     Dates: end: 20110831
  4. METFORMIN HCL [Suspect]
     Indication: TYPE 2 DIABETES MELLITUS
     Route: 048
     Dates: start: 20110520, end: 20110831
  5. SPIROPENT [Concomitant]
     Route: 048
     Dates: end: 20110831

REACTIONS (1)
  - GASTROINTESTINAL HAEMORRHAGE [None]
